FAERS Safety Report 18780548 (Version 1)
Quarter: 2021Q1

REPORT INFORMATION
  Report Type: Spontaneous
  Country: US (occurrence: US)
  Receive Date: 20210122
  Receipt Date: 20210122
  Transmission Date: 20210419
  Serious: No
  Sender: FDA-Public Use
  Company Number: None

PATIENT
  Age: 64 Year
  Sex: Male
  Weight: 97.52 kg

DRUGS (1)
  1. ORENCIA [Suspect]
     Active Substance: ABATACEPT
     Indication: RHEUMATOID ARTHRITIS
     Dosage: INFUSE 750MG INTRAVENOUSLY AT WEKK O, 2 AND 4 THEN EVERY 4 WEEKS AS DIRECTED
     Route: 042
     Dates: start: 201807

REACTIONS (1)
  - Therapy interrupted [None]
